FAERS Safety Report 20029033 (Version 1)
Quarter: 2021Q4

REPORT INFORMATION
  Report Type: Spontaneous
  Country: US (occurrence: US)
  Receive Date: 20211103
  Receipt Date: 20211103
  Transmission Date: 20220304
  Serious: No
  Sender: FDA-Public Use
  Company Number: US-BAXTER-2021BAX033941

PATIENT
  Age: 51 Year
  Sex: Male

DRUGS (1)
  1. DIANEAL LOW CALCIUM PERITONEAL DIALYSIS SOLUTION WITH DEXTROSE [Suspect]
     Active Substance: CALCIUM CHLORIDE\DEXTROSE\MAGNESIUM CHLORIDE\SODIUM CHLORIDE\SODIUM LACTATE
     Indication: Peritoneal dialysis
     Route: 033

REACTIONS (6)
  - Headache [Unknown]
  - Heart rate increased [Unknown]
  - Hangover [Unknown]
  - Dehydration [Unknown]
  - Blood pressure decreased [Unknown]
  - Pain [Unknown]

NARRATIVE: CASE EVENT DATE: 20211027
